FAERS Safety Report 7995354-3 (Version None)
Quarter: 2011Q4

REPORT INFORMATION
  Report Type: 
  Country: None (occurrence: None)
  Receive Date: 20111220
  Receipt Date: 20111207
  Transmission Date: 20120403
  Serious: Yes (Other)
  Sender: FDA-Public Use
  Company Number: US-ENDO PHARMACEUTICALS INC.-TRAZ20110020

PATIENT
  Age: 58 Year
  Sex: Female

DRUGS (1)
  1. TRAZODONE HCL [Suspect]
     Indication: DEPRESSION
     Route: 048
     Dates: start: 20110923, end: 20110901

REACTIONS (4)
  - INSOMNIA [None]
  - DRUG INEFFECTIVE [None]
  - ANXIETY [None]
  - SUICIDAL IDEATION [None]
